FAERS Safety Report 12738631 (Version 3)
Quarter: 2018Q2

REPORT INFORMATION
  Report Type: Spontaneous
  Country: US (occurrence: US)
  Receive Date: 20160912
  Receipt Date: 20180515
  Transmission Date: 20180711
  Serious: No
  Sender: FDA-Public Use
  Company Number: US-SA-2016SA145871

PATIENT
  Age: 62 Year
  Sex: Female

DRUGS (4)
  1. TOUJEO [Suspect]
     Active Substance: INSULIN GLARGINE
     Indication: DIABETES MELLITUS
     Dosage: DOSE:40 UNIT(S)
     Route: 065
  2. TOUJEO [Suspect]
     Active Substance: INSULIN GLARGINE
     Indication: DIABETES MELLITUS
     Dosage: DOSE:40 UNIT(S)
     Route: 065
     Dates: start: 20160719
  3. SOLOSTAR [Concomitant]
     Active Substance: DEVICE
     Indication: DIABETES MELLITUS
     Dates: start: 20160719
  4. SOLOSTAR [Concomitant]
     Active Substance: DEVICE
     Indication: DIABETES MELLITUS

REACTIONS (7)
  - Memory impairment [Unknown]
  - Influenza [Unknown]
  - Malaise [Unknown]
  - Product use issue [Unknown]
  - Renal pain [Unknown]
  - Injection site pain [Unknown]
  - Feeling of body temperature change [Unknown]

NARRATIVE: CASE EVENT DATE: 2016
